FAERS Safety Report 5216585-1 (Version None)
Quarter: 2007Q1

REPORT INFORMATION
  Report Type: 
  Country: None (occurrence: None)
  Receive Date: 20061130
  Receipt Date: 20060901
  Transmission Date: 20070707
  Serious: Yes (Other)
  Sender: FDA-Public Use
  Company Number: US200608002791

PATIENT
  Age: 47 Year
  Sex: Male

DRUGS (11)
  1. ZYPREXA [Suspect]
     Indication: MAJOR DEPRESSION
     Dosage: SEE IMAGE
     Route: 048
     Dates: start: 20050901
  2. ZYPREXA [Suspect]
     Indication: MAJOR DEPRESSION
     Dosage: SEE IMAGE
     Route: 048
     Dates: start: 20060401
  3. PAROXETINE [Concomitant]
  4. THIAMINE (THIAMINE) [Concomitant]
  5. FOLIC ACID [Concomitant]
  6. CLONIDINE [Concomitant]
  7. ATENOLOL [Concomitant]
  8. LANSOPRAZOLE [Concomitant]
  9. POTASSIUM CHLORIDE [Concomitant]
  10. SIMVASTATIN [Concomitant]
  11. EZETIMIBE (EZETIMIBE) [Concomitant]

REACTIONS (3)
  - DIABETES MELLITUS [None]
  - HYPERGLYCAEMIA [None]
  - NEUROPATHY PERIPHERAL [None]
